FAERS Safety Report 5205886-9 (Version None)
Quarter: 2007Q1

REPORT INFORMATION
  Report Type: 
  Country: None (occurrence: None)
  Receive Date: 20070111
  Receipt Date: 20070108
  Transmission Date: 20070707
  Serious: Yes (Other)
  Sender: FDA-Public Use
  Company Number: 2007UW00378

PATIENT
  Age: 57 Year
  Sex: Female

DRUGS (1)
  1. ARIMIDEX [Suspect]
     Route: 048
     Dates: start: 20041201

REACTIONS (2)
  - COLITIS ISCHAEMIC [None]
  - TRANSIENT ISCHAEMIC ATTACK [None]
